FAERS Safety Report 12742775 (Version 4)
Quarter: 2016Q4

REPORT INFORMATION
  Report Type: Report from Study
  Country: US (occurrence: US)
  Receive Date: 20160914
  Receipt Date: 20161107
  Transmission Date: 20170207
  Serious: Yes (Other)
  Sender: FDA-Public Use
  Company Number: US-GILEAD-2016-0233133

PATIENT
  Age: 14 Year
  Sex: Female

DRUGS (2)
  1. AMBRISENTAN [Suspect]
     Active Substance: AMBRISENTAN
     Indication: PRODUCT USED FOR UNKNOWN INDICATION
     Dosage: 10 MG, QD
     Route: 065
     Dates: start: 20151030
  2. ADCIRCA [Concomitant]
     Active Substance: TADALAFIL

REACTIONS (16)
  - Benign neoplasm [Unknown]
  - Erythema [Unknown]
  - Tenderness [Unknown]
  - Gastrointestinal disorder [Not Recovered/Not Resolved]
  - Back pain [Recovered/Resolved]
  - Swelling [Unknown]
  - Muscle spasms [Unknown]
  - Dyspnoea [Unknown]
  - Sensory loss [Unknown]
  - Lymphadenopathy [Recovered/Resolved]
  - Off label use [Not Recovered/Not Resolved]
  - Syncope [Unknown]
  - Ear infection [Unknown]
  - Vision blurred [Unknown]
  - Sleep apnoea syndrome [Unknown]
  - Anaemia [Unknown]

NARRATIVE: CASE EVENT DATE: 20151030
